FAERS Safety Report 23276311 (Version 1)
Quarter: 2023Q4

REPORT INFORMATION
  Report Type: Spontaneous
  Country: PT (occurrence: PT)
  Receive Date: 20231208
  Receipt Date: 20231208
  Transmission Date: 20240109
  Serious: Yes (Other)
  Sender: FDA-Public Use
  Company Number: PT-009507513-2312PRT001714

PATIENT
  Age: 57 Year
  Sex: Male

DRUGS (3)
  1. DORAVIRINE [Suspect]
     Active Substance: DORAVIRINE
     Dosage: UNK
     Route: 048
     Dates: start: 2023
  2. RALTEGRAVIR POTASSIUM [Suspect]
     Active Substance: RALTEGRAVIR POTASSIUM
     Dosage: UNK
     Route: 048
     Dates: start: 2015
  3. DOLUTEGRAVIR [Suspect]
     Active Substance: DOLUTEGRAVIR
     Dosage: UNK
     Dates: start: 202210

REACTIONS (7)
  - Renal impairment [Unknown]
  - Helicobacter test positive [Unknown]
  - Metabolic disorder [Unknown]
  - High density lipoprotein abnormal [Unknown]
  - Blood triglycerides abnormal [Unknown]
  - Glycosylated haemoglobin abnormal [Unknown]
  - Off label use [Unknown]

NARRATIVE: CASE EVENT DATE: 20230101
